FAERS Safety Report 7415031-7 (Version None)
Quarter: 2011Q2

REPORT INFORMATION
  Report Type: 
  Country: None (occurrence: None)
  Receive Date: 20110414
  Receipt Date: 20110407
  Transmission Date: 20111010
  Serious: Yes (Hospitalization)
  Sender: FDA-Public Use
  Company Number: NL-ROCHE-760460

PATIENT
  Sex: Female

DRUGS (5)
  1. DOCETAXEL [Suspect]
     Indication: BREAST CANCER
     Dosage: LAST DOSE PRIOR TO SAE: 09 FEBRUARY 2011
     Route: 042
     Dates: start: 20110209
  2. METOCLOPRAMIDE [Concomitant]
     Indication: NAUSEA
     Dates: start: 20110209, end: 20110220
  3. DEXAMETHASONE [Concomitant]
     Indication: NAUSEA
     Dates: start: 20110209, end: 20110210
  4. CAPECITABINE [Suspect]
     Indication: BREAST CANCER
     Dosage: 825MG/M2, 2X/DAY, FROM 1 TO 14
     Route: 048
     Dates: start: 20110209, end: 20110213
  5. CAPECITABINE [Suspect]
     Route: 048
     Dates: start: 20110214

REACTIONS (4)
  - MUCOSAL INFLAMMATION [None]
  - NAUSEA [None]
  - FEBRILE NEUTROPENIA [None]
  - VOMITING [None]
